FAERS Safety Report 17235928 (Version 1)
Quarter: 2020Q1

REPORT INFORMATION
  Report Type: Spontaneous
  Country: DE (occurrence: DE)
  Receive Date: 20200106
  Receipt Date: 20200106
  Transmission Date: 20200409
  Serious: Yes (Other)
  Sender: FDA-Public Use
  Company Number: DE-TORRENT-00016486

PATIENT
  Sex: Female
  Weight: 59 kg

DRUGS (2)
  1. VENLAFAXINE [Suspect]
     Active Substance: VENLAFAXINE HYDROCHLORIDE
     Indication: PRODUCT USED FOR UNKNOWN INDICATION
     Dosage: (1X1)
     Route: 048
     Dates: start: 20160227, end: 20160227
  2. PANTOPRAZOL NYC [Concomitant]
     Active Substance: PANTOPRAZOLE SODIUM
     Indication: PRODUCT USED FOR UNKNOWN INDICATION
     Dosage: (1X1)
     Route: 048
     Dates: start: 20141228

REACTIONS (5)
  - Fall [Unknown]
  - Anaphylactic shock [Unknown]
  - Burning sensation mucosal [Unknown]
  - Tachycardia [Unknown]
  - Serotonin syndrome [Unknown]

NARRATIVE: CASE EVENT DATE: 20160227
